FAERS Safety Report 9260021 (Version 1)
Quarter: 2013Q2

REPORT INFORMATION
  Report Type: Spontaneous
  Country: CR (occurrence: CR)
  Receive Date: 20130429
  Receipt Date: 20130429
  Transmission Date: 20140414
  Serious: Yes (Other)
  Sender: FDA-Public Use
  Company Number: CR-JNJFOC-20130412879

PATIENT
  Sex: Male

DRUGS (2)
  1. XARELTO [Suspect]
     Indication: EMBOLISM VENOUS
     Route: 048
  2. XARELTO [Suspect]
     Indication: VENOUS THROMBOSIS LIMB
     Route: 048

REACTIONS (1)
  - Guillain-Barre syndrome [Unknown]
